FAERS Safety Report 18344713 (Version 1)
Quarter: 2020Q4

REPORT INFORMATION
  Report Type: Spontaneous
  Country: IT (occurrence: IT)
  Receive Date: 20201005
  Receipt Date: 20201005
  Transmission Date: 20210114
  Serious: Yes (Hospitalization)
  Sender: FDA-Public Use
  Company Number: IT-TEVA-2020-IT-1834756

PATIENT
  Age: 67 Year
  Sex: Female

DRUGS (7)
  1. FOLINA [Concomitant]
  2. ROACTEMRA [Concomitant]
     Active Substance: TOCILIZUMAB
  3. ATENOLOL. [Concomitant]
     Active Substance: ATENOLOL
  4. METHOTREXATE. [Suspect]
     Active Substance: METHOTREXATE
     Indication: RHEUMATOID ARTHRITIS
     Dosage: UNIT DOSE : 15 MG
     Route: 030
     Dates: start: 20170118, end: 20200827
  5. DIBASE [Concomitant]
     Active Substance: CHOLECALCIFEROL
  6. ACETAMINOPHEN AND CODEINE [Concomitant]
     Active Substance: ACETAMINOPHEN\CODEINE PHOSPHATE
  7. ATORVASTATIN [Concomitant]
     Active Substance: ATORVASTATIN

REACTIONS (2)
  - Hepatitis [Recovered/Resolved]
  - Cholangitis [Recovered/Resolved]

NARRATIVE: CASE EVENT DATE: 20200827
